FAERS Safety Report 8585057-9 (Version None)
Quarter: 2012Q3

REPORT INFORMATION
  Report Type: 
  Country: None (occurrence: None)
  Receive Date: 20120810
  Receipt Date: 20120802
  Transmission Date: 20120928
  Serious: Yes (Other)
  Sender: FDA-Public Use
  Company Number: US-US-EMD SERONO, INC.-7040066

PATIENT
  Sex: Female
  Weight: 53 kg

DRUGS (4)
  1. CALCIUM SUPPLEMENTS [Concomitant]
  2. REBIF [Suspect]
     Indication: MULTIPLE SCLEROSIS
     Route: 058
     Dates: start: 20070405, end: 20110202
  3. VITAMIN B-12 [Concomitant]
  4. BIRTH CONTROL PILLS [Concomitant]

REACTIONS (2)
  - METASTASES TO LIVER [None]
  - COLON CANCER [None]
